FAERS Safety Report 14702535 (Version 1)
Quarter: 2018Q2

REPORT INFORMATION
  Report Type: Spontaneous
  Country: FR (occurrence: FR)
  Receive Date: 20180401
  Receipt Date: 20180401
  Transmission Date: 20180711
  Serious: Yes (Other)
  Sender: FDA-Public Use
  Company Number: FR-MERCK KGAA-2044850

PATIENT
  Age: 72 Year
  Sex: Female

DRUGS (2)
  1. LEVOTHYROX NF [Suspect]
     Active Substance: LEVOTHYROXINE SODIUM
  2. NOVOTHYROX [Suspect]
     Active Substance: LEVOTHYROXINE SODIUM
     Indication: BLOOD THYROID STIMULATING HORMONE ABNORMAL

REACTIONS (25)
  - Creatine urine increased [None]
  - Abdominal pain upper [None]
  - Muscular weakness [None]
  - Weight decreased [None]
  - Headache [None]
  - Irritability [None]
  - Decreased appetite [None]
  - Affective disorder [None]
  - Hyperthyroidism [Recovered/Resolved]
  - Blood uric acid increased [None]
  - Fatigue [None]
  - Depressed mood [None]
  - Fall [None]
  - Personal relationship issue [None]
  - Arthralgia [None]
  - Asthenia [None]
  - Mood swings [None]
  - Balance disorder [None]
  - Blood thyroid stimulating hormone abnormal [None]
  - Impaired work ability [None]
  - Insomnia [None]
  - Depression [None]
  - Abdominal pain [None]
  - Palpitations [None]
  - Alopecia [None]

NARRATIVE: CASE EVENT DATE: 20170502
